FAERS Safety Report 21144910 (Version 1)
Quarter: 2022Q3

REPORT INFORMATION
  Report Type: Report from Study
  Country: US (occurrence: US)
  Receive Date: 20220728
  Receipt Date: 20220728
  Transmission Date: 20221026
  Serious: Yes (Other)
  Sender: FDA-Public Use
  Company Number: US-ABBVIE-22K-163-4484924-00

PATIENT
  Sex: Female

DRUGS (4)
  1. RINVOQ [Suspect]
     Active Substance: UPADACITINIB
     Indication: Rheumatoid arthritis
     Route: 048
  2. COVID-19 VACCINE [Concomitant]
     Indication: COVID-19 immunisation
     Route: 030
     Dates: start: 20210108, end: 20210108
  3. COVID-19 VACCINE [Concomitant]
     Route: 030
     Dates: start: 20210210, end: 20210210
  4. COVID-19 VACCINE [Concomitant]
     Route: 030
     Dates: start: 20211015, end: 20211015

REACTIONS (1)
  - Breast cancer [Unknown]
